FAERS Safety Report 15206320 (Version 1)
Quarter: 2018Q3

REPORT INFORMATION
  Report Type: Spontaneous
  Country: HR (occurrence: HR)
  Receive Date: 20180727
  Receipt Date: 20180727
  Transmission Date: 20181010
  Serious: Yes (Hospitalization)
  Sender: FDA-Public Use
  Company Number: HR-TEVA-2018-HR-931271

PATIENT
  Age: 65 Year
  Sex: Female
  Weight: 86 kg

DRUGS (3)
  1. CISPLATIN. [Suspect]
     Active Substance: CISPLATIN
     Indication: CERVIX CARCINOMA
     Dosage: 60 MILLIGRAM DAILY; 60 MG; U 500 ML F.O. , UNSPECIFIED
     Route: 042
     Dates: start: 20180627, end: 20180627
  2. RAMZID 2,5/12,5 MG TABLETE [Concomitant]
     Dosage: 1 DOSAGE FORMS DAILY;
     Route: 048
  3. TORVAS [Concomitant]
     Route: 048

REACTIONS (5)
  - Pyrexia [Recovered/Resolved]
  - Hepatic enzyme increased [Recovering/Resolving]
  - Chills [Recovered/Resolved]
  - General physical health deterioration [Unknown]
  - Rash generalised [Recovered/Resolved]

NARRATIVE: CASE EVENT DATE: 20180627
